FAERS Safety Report 8694476 (Version 3)
Quarter: 2012Q4

REPORT INFORMATION
  Report Type: Spontaneous
  Country: US (occurrence: None)
  Receive Date: 20120713
  Receipt Date: 20120911
  Transmission Date: 20130627
  Serious: Yes (Hospitalization, Other)
  Sender: FDA-Public Use
  Company Number: DSU-2012-05283

PATIENT
  Age: 71 Year
  Sex: Female

DRUGS (14)
  1. BENICAR [Suspect]
     Indication: HYPERTENSION
     Dosage: 20 MG (20 MG,QD),PER ORAL, (20 MG,QD),PER ORAL
     Route: 048
  2. BENICAR [Suspect]
     Indication: HYPERTENSION
     Dosage: 20 MG (20 MG,QD),PER ORAL, (20 MG,QD),PER ORAL
     Route: 048
     Dates: start: 20100818, end: 20100831
  3. MERCAPTOPURINE [Concomitant]
  4. BICARBONATE(SODIUM BICARBONATE)(SODIUM BICARBONATE) [Concomitant]
  5. EPCID(FAMOTIDINE)(FAMOTIDINE) [Concomitant]
  6. LANTUS [Concomitant]
  7. XANAX [Concomitant]
  8. GABAPENTIN [Concomitant]
  9. VITAMIN D (ERGOCALCIFEROL) (ERGOCALCIFEROL) [Concomitant]
  10. LOSARTAN (LOSARTAN) ( LOSARTAN ) [Concomitant]
  11. CRESTOR [Concomitant]
  12. BUMEX(BUMETANIDE)(BUMETANIDE) [Concomitant]
  13. FEOSOL(FERROUS SULFATE) (FERROUS SULFATE) [Concomitant]
  14. NOVOLOG(INSULIN ASPART) (INSULIN ASPART) [Concomitant]

REACTIONS (6)
  - VOMITING [None]
  - COELIAC DISEASE [None]
  - WEIGHT DECREASED [None]
  - HIP FRACTURE [None]
  - HYPOTENSION [None]
  - NAUSEA [None]
